FAERS Safety Report 19177155 (Version 2)
Quarter: 2021Q2

REPORT INFORMATION
  Report Type: Report from Study
  Country: CN (occurrence: CN)
  Receive Date: 20210425
  Receipt Date: 20210502
  Transmission Date: 20210717
  Serious: Yes (Hospitalization)
  Sender: FDA-Public Use
  Company Number: CN-JIANGSU HENGRUI MEDICINE CO., LTD.-2109783

PATIENT
  Age: 63 Year
  Sex: Male
  Weight: 51.6 kg

DRUGS (3)
  1. OXALIPLATIN INJECTION USP, 5 MG/ML, PACKAGED IN 50 MG/10 ML AND 100 MG [Suspect]
     Active Substance: OXALIPLATIN
     Indication: GASTRIC CANCER
     Route: 041
     Dates: start: 20210413, end: 20210413
  2. CAPECITABINE TABLETS [Suspect]
     Active Substance: CAPECITABINE
     Route: 048
     Dates: start: 20210413
  3. SHR?1210 [Suspect]
     Active Substance: CAMRELIZUMAB
     Route: 041
     Dates: start: 20210413, end: 20210413

REACTIONS (1)
  - Gastrointestinal haemorrhage [Recovering/Resolving]

NARRATIVE: CASE EVENT DATE: 20210414
